FAERS Safety Report 4623125-4 (Version None)
Quarter: 2005Q1

REPORT INFORMATION
  Report Type: 
  Country: None (occurrence: None)
  Receive Date: 20050328
  Receipt Date: 20050328
  Transmission Date: 20050727
  Serious: Yes (Death)
  Sender: FDA-Public Use
  Company Number: None

PATIENT
  Sex: Male
  Weight: 110 kg

DRUGS (1)
  1. DAUNORUBICIN HCL [Suspect]
     Dates: start: 20040324

REACTIONS (2)
  - COMPLICATIONS OF TRANSPLANT SURGERY [None]
  - MULTI-ORGAN FAILURE [None]
